FAERS Safety Report 4945366-9 (Version None)
Quarter: 2006Q1

REPORT INFORMATION
  Report Type: 
  Country: None (occurrence: None)
  Receive Date: 20060315
  Receipt Date: 20060315
  Transmission Date: 20060701
  Serious: Yes (Hospitalization)
  Sender: FDA-Public Use
  Company Number: None

PATIENT
  Sex: Female
  Weight: 70.4 kg

DRUGS (3)
  1. FLUOROURACIL [Suspect]
     Indication: BREAST CANCER
     Dosage: 900 MG
     Dates: start: 20060130
  2. CYCLOPHOSPHAMIDE [Suspect]
     Dosage: 900 MG
  3. EPIRUBICIN [Suspect]
     Dosage: 181 MG
     Dates: start: 20060130

REACTIONS (8)
  - DIVERTICULITIS [None]
  - HAEMODIALYSIS [None]
  - INTESTINAL PERFORATION [None]
  - MYOPATHY [None]
  - NEUROPATHY [None]
  - NEUTROPENIA [None]
  - PERITONITIS [None]
  - RENAL FAILURE ACUTE [None]
